FAERS Safety Report 8812781 (Version 1)
Quarter: 2012Q4

REPORT INFORMATION
  Report Type: 
  Country: JP (occurrence: JP)
  Receive Date: 20120927
  Receipt Date: 20120927
  Transmission Date: 20130627
  Serious: Yes (Death, Hospitalization)
  Sender: FDA-Public Use
  Company Number: JP-TEVA-353796ISR

PATIENT
  Age: 72 Year
  Sex: Male

DRUGS (13)
  1. FUROSEMIDE [Suspect]
     Indication: POLYURIA
     Dosage: 10 Milligram Daily;
     Route: 048
     Dates: start: 20120718, end: 20120725
  2. NIKORANMART [Suspect]
     Indication: VASODILATION PROCEDURE
     Dosage: 15 Milligram Daily;
     Route: 048
  3. BAYASPIRIN [Suspect]
     Indication: THROMBOSIS
     Dosage: 100 Milligram Daily;
     Route: 048
  4. LANSOPRAZOLE [Suspect]
     Indication: ULCER
     Dosage: 15 Milligram Daily;
     Route: 048
  5. APORASNON 25MG [Suspect]
     Indication: POLYURIA
     Dosage: 12.5 Milligram Daily;
     Route: 048
  6. PLAVIX [Suspect]
     Indication: ANGINA PECTORIS
     Dosage: 75 Milligram Daily;
     Route: 048
  7. COROHERSER [Suspect]
     Indication: ANGINA PECTORIS
     Dosage: 100 Milligram Daily;
     Route: 048
  8. TULOBUTEN TAPE [Suspect]
     Indication: BRONCHITIS
     Dosage: 2 Milligram Daily;
  9. KOBALNON [Suspect]
     Indication: ULCER
     Dosage: 150 Milligram Daily;
     Route: 048
  10. ISOPIT TAPE [Suspect]
     Indication: VASODILATION PROCEDURE
     Dosage: 40 Milligram Daily;
  11. ALOSITOL [Suspect]
     Indication: HYPERTENSION
     Dosage: 200 Milligram Daily;
     Route: 048
  12. RINGEREAZE [Suspect]
     Indication: ANALGESIC THERAPY
     Dosage: 60 Milligram Daily;
     Route: 048
  13. WARFARIN [Concomitant]
     Indication: THROMBOSIS
     Dosage: 1.75 Tablet Daily;
     Route: 048

REACTIONS (8)
  - Hepatic function abnormal [Not Recovered/Not Resolved]
  - Urticaria [Recovering/Resolving]
  - Thrombocytopenia [Not Recovered/Not Resolved]
  - Hepatitis acute [Fatal]
  - Hepatic failure [Fatal]
  - Disseminated intravascular coagulation [Fatal]
  - Renal failure [Fatal]
  - Multi-organ failure [Fatal]
